FAERS Safety Report 23247847 (Version 1)
Quarter: 2023Q4

REPORT INFORMATION
  Report Type: Spontaneous
  Country: HU (occurrence: HU)
  Receive Date: 20231130
  Receipt Date: 20231130
  Transmission Date: 20240109
  Serious: Yes (Other)
  Sender: FDA-Public Use
  Company Number: HU-VERTEX PHARMACEUTICALS-2023-017792

PATIENT

DRUGS (2)
  1. ELEXACAFTOR\IVACAFTOR\TEZACAFTOR [Suspect]
     Active Substance: ELEXACAFTOR\IVACAFTOR\TEZACAFTOR
     Indication: Cystic fibrosis
     Dosage: 2 TABLETS (75 MG IVACAFTOR, 50 MG TEZACAFTOR AND 100 MG ELEXACAFTOR) IN THE MORNING
     Route: 048
     Dates: start: 202211
  2. KALYDECO [Suspect]
     Active Substance: IVACAFTOR
     Indication: Cystic fibrosis
     Dosage: 150 MILLIGRAM, QD IN EVENING
     Route: 048
     Dates: start: 202211

REACTIONS (2)
  - Suicidal ideation [Recovering/Resolving]
  - Depression [Recovering/Resolving]
